FAERS Safety Report 21525563 (Version 2)
Quarter: 2022Q4

REPORT INFORMATION
  Report Type: Spontaneous
  Country: US (occurrence: US)
  Receive Date: 20221030
  Receipt Date: 20221105
  Transmission Date: 20230113
  Serious: Yes (Life-Threatening, Other)
  Sender: FDA-Public Use
  Company Number: US-drreddys-LIT/USA/22/0156445

PATIENT
  Age: 86 Year
  Sex: Male

DRUGS (7)
  1. MOXIFLOXACIN [Suspect]
     Active Substance: MOXIFLOXACIN
     Indication: Open angle glaucoma
  2. PREDNISOLONE [Suspect]
     Active Substance: PREDNISOLONE
     Indication: Open angle glaucoma
  3. ATROPINE [Suspect]
     Active Substance: ATROPINE
     Indication: Open angle glaucoma
  4. acetozolamide [Concomitant]
     Indication: Open angle glaucoma
     Route: 048
  5. RIVAROXABAN [Concomitant]
     Active Substance: RIVAROXABAN
     Indication: Atrial fibrillation
  6. pseudophakia [Concomitant]
     Indication: Product used for unknown indication
  7. MITOMYCIN C [Concomitant]
     Active Substance: MITOMYCIN
     Indication: Product used for unknown indication
     Dosage: WERE PLACED FOR 2 MINUTES

REACTIONS (5)
  - Condition aggravated [Recovered/Resolved]
  - Retinal tear [Recovered/Resolved]
  - Choroidal infarction [Recovered/Resolved]
  - Transient ischaemic attack [Recovered/Resolved]
  - Drug ineffective [Unknown]
